FAERS Safety Report 16918577 (Version 2)
Quarter: 2019Q4

REPORT INFORMATION
  Report Type: Spontaneous
  Country: JP (occurrence: JP)
  Receive Date: 20191015
  Receipt Date: 20191101
  Transmission Date: 20200122
  Serious: Yes (Death, Life-Threatening)
  Sender: FDA-Public Use
  Company Number: JP-MYLANLABS-2019M1095661

PATIENT
  Age: 62 Year
  Sex: Male
  Weight: 43 kg

DRUGS (2)
  1. CARBOPLATIN INJ. 50MG ^NK^ [Suspect]
     Active Substance: CARBOPLATIN
     Indication: LUNG ADENOCARCINOMA
     Dosage: 450 MILLIGRAM, QD
     Route: 042
     Dates: start: 20190920, end: 20190920
  2. ABRAXANE [Suspect]
     Active Substance: PACLITAXEL
     Indication: LUNG ADENOCARCINOMA
     Dosage: 110 MILLIGRAM, QD
     Route: 065
     Dates: start: 20190920, end: 20190920

REACTIONS (2)
  - Malignant pleural effusion [Fatal]
  - Hypophagia [Fatal]

NARRATIVE: CASE EVENT DATE: 20190924
